FAERS Safety Report 4788707-8 (Version None)
Quarter: 2005Q3

REPORT INFORMATION
  Report Type: 
  Country: None (occurrence: None)
  Receive Date: 20050915
  Receipt Date: 20050718
  Transmission Date: 20060218
  Serious: No
  Sender: FDA-Public Use
  Company Number: BDI-007376

PATIENT
  Sex: Female
  Weight: 45 kg

DRUGS (2)
  1. MULTIHANCE [Suspect]
     Indication: HEPATITIS B
     Dosage: 20 ML ONCE IV
     Route: 042
     Dates: start: 20050718, end: 20050718
  2. MULTIHANCE [Suspect]
     Indication: NUCLEAR MAGNETIC RESONANCE IMAGING ABDOMINAL
     Dosage: 20 ML ONCE IV
     Route: 042
     Dates: start: 20050718, end: 20050718

REACTIONS (2)
  - NAUSEA [None]
  - VOMITING [None]
